FAERS Safety Report 26087632 (Version 1)
Quarter: 2025Q4

REPORT INFORMATION
  Report Type: Spontaneous
  Country: IN (occurrence: IN)
  Receive Date: 20251125
  Receipt Date: 20251125
  Transmission Date: 20260118
  Serious: Yes (Death)
  Sender: GE HEALTHCARE
  Company Number: IN-GE HEALTHCARE-2025CSU015958

PATIENT
  Sex: Female

DRUGS (1)
  1. OMNIPAQUE [Suspect]
     Active Substance: IOHEXOL
     Indication: Computerised tomogram neck
     Dosage: UNK UNK, TOTAL
     Route: 042
     Dates: start: 20251107

REACTIONS (5)
  - Sepsis [Fatal]
  - Oxygen saturation decreased [Fatal]
  - Dyspnoea [Fatal]
  - Hypotension [Fatal]
  - Chills [Fatal]

NARRATIVE: CASE EVENT DATE: 20251101
